FAERS Safety Report 16140745 (Version 1)
Quarter: 2019Q2

REPORT INFORMATION
  Report Type: Spontaneous
  Country: MX (occurrence: MX)
  Receive Date: 20190330
  Receipt Date: 20190330
  Transmission Date: 20190711
  Serious: Yes (Disabling)
  Sender: FDA-Public Use
  Company Number: None

PATIENT
  Age: 59 Year
  Sex: Female
  Weight: 57.6 kg

DRUGS (12)
  1. CIPROFLOXACIN HCL 500 MG [Suspect]
     Active Substance: CIPROFLOXACIN HYDROCHLORIDE
     Indication: DIARRHOEA INFECTIOUS
     Dosage: ?          QUANTITY:1 TABLET(S);?
     Route: 048
     Dates: start: 20190305, end: 20190307
  2. TOPICAL HORMONE REPLACEMENT THERAPY [Concomitant]
  3. MULTIVITAMIN [Concomitant]
     Active Substance: VITAMINS
  4. FISH OIL [Concomitant]
     Active Substance: FISH OIL
  5. MAGNESIUM [Concomitant]
     Active Substance: MAGNESIUM
  6. VITAMIN D3 [Concomitant]
     Active Substance: CHOLECALCIFEROL
  7. NIACIN. [Concomitant]
     Active Substance: NIACIN
  8. FLAXSEED [Concomitant]
     Active Substance: FLAX SEED
  9. LUTEIN [Concomitant]
     Active Substance: LUTEIN
  10. BIOTIN [Concomitant]
     Active Substance: BIOTIN
  11. MSM [Concomitant]
     Active Substance: DIMETHYL SULFONE
  12. DIMM [Concomitant]

REACTIONS (3)
  - Gait disturbance [None]
  - Bone pain [None]
  - Pain in extremity [None]

NARRATIVE: CASE EVENT DATE: 20190308
